FAERS Safety Report 6928361-X (Version None)
Quarter: 2010Q3

REPORT INFORMATION
  Report Type: 
  Country: None (occurrence: None)
  Receive Date: 20100817
  Receipt Date: 20100813
  Transmission Date: 20110219
  Serious: Yes (Hospitalization, Other)
  Sender: FDA-Public Use
  Company Number: US-MERCK-1006USA02451

PATIENT
  Age: 64 Year
  Sex: Female

DRUGS (4)
  1. FOSAMAX [Suspect]
     Indication: OSTEOPENIA
     Route: 048
     Dates: start: 20040101, end: 20061201
  2. FOSAMAX [Suspect]
     Route: 048
     Dates: start: 20000401, end: 20000601
  3. FOSAMAX PLUS D [Suspect]
     Indication: OSTEOPENIA
     Route: 048
     Dates: start: 20061201, end: 20090501
  4. [THERAPY UNSPECIFIED] [Concomitant]
     Indication: STEROID THERAPY
     Route: 065
     Dates: start: 19960101, end: 20010101

REACTIONS (15)
  - ARTHROPATHY [None]
  - BLOOD TRIGLYCERIDES INCREASED [None]
  - DEHYDRATION [None]
  - DEPRESSION [None]
  - DEVICE RELATED INFECTION [None]
  - DIABETES MELLITUS [None]
  - GOITRE [None]
  - HYPERTENSION [None]
  - IMPAIRED HEALING [None]
  - NEPHROPATHY [None]
  - ORAL INFECTION [None]
  - OSTEONECROSIS OF JAW [None]
  - PANCREATITIS CHRONIC [None]
  - RENAL ARTERY STENOSIS [None]
  - ROTATOR CUFF SYNDROME [None]
